FAERS Safety Report 15484919 (Version 1)
Quarter: 2018Q4

REPORT INFORMATION
  Report Type: Spontaneous
  Country: US (occurrence: US)
  Receive Date: 20181010
  Receipt Date: 20181010
  Transmission Date: 20190205
  Serious: No
  Sender: FDA-Public Use
  Company Number: US-ROCHE-2167871

PATIENT
  Sex: Female
  Weight: 99.88 kg

DRUGS (2)
  1. ZELBORAF [Suspect]
     Active Substance: VEMURAFENIB
     Dosage: 8 DAILY; ONGOING
     Route: 048
     Dates: start: 20180717
  2. ZELBORAF [Suspect]
     Active Substance: VEMURAFENIB
     Indication: METASTASES TO LUNG
     Dosage: ONGOING: UNKNOWN
     Route: 048
     Dates: start: 20180712

REACTIONS (1)
  - Neoplasm skin [Unknown]
